FAERS Safety Report 7190673-5 (Version None)
Quarter: 2010Q4

REPORT INFORMATION
  Report Type: 
  Country: None (occurrence: None)
  Receive Date: 20101223
  Receipt Date: 20101220
  Transmission Date: 20110411
  Serious: Yes (Hospitalization)
  Sender: FDA-Public Use
  Company Number: FR-PFIZER INC-2010175278

PATIENT
  Age: 53 Day
  Sex: Female

DRUGS (6)
  1. ALDACTONE [Suspect]
     Indication: FOETAL GROWTH RESTRICTION
     Dosage: 2 MG, 1X/DAY
     Route: 048
     Dates: start: 20100801
  2. FLUCONAZOLE [Suspect]
     Indication: OPPORTUNISTIC INFECTION PROPHYLAXIS
     Dosage: UNK
     Route: 042
     Dates: start: 20100819, end: 20100928
  3. CELESTONE [Suspect]
     Indication: FOETAL GROWTH RESTRICTION
     Dosage: UNK
     Route: 042
     Dates: start: 20100819, end: 20100907
  4. FERROSTRANE [Concomitant]
     Indication: ANAEMIA NEONATAL
     Dosage: 0.2 ML, 2X/DAY
     Route: 048
  5. SPECIAFOLDINE [Concomitant]
     Indication: ANAEMIA NEONATAL
     Dosage: 0.4 MG, 1X/DAY
     Route: 048
  6. CORTICOSTEROID NOS [Concomitant]
     Indication: LUNG DISORDER
     Dosage: UNK
     Dates: start: 20100819

REACTIONS (1)
  - FEMUR FRACTURE [None]
